FAERS Safety Report 24396176 (Version 2)
Quarter: 2024Q4

REPORT INFORMATION
  Report Type: Report from Study
  Country: US (occurrence: US)
  Receive Date: 20241004
  Receipt Date: 20241115
  Transmission Date: 20250114
  Serious: Yes (Other)
  Sender: ABBVIE
  Company Number: US-ABBVIE-5936119

PATIENT
  Age: 17 Year
  Sex: Male
  Weight: 73 kg

DRUGS (4)
  1. HUMIRA [Suspect]
     Active Substance: ADALIMUMAB
     Indication: Colitis ulcerative
     Dosage: FORM STRENGTH: 80MG?STOP DATE 2023
     Route: 058
     Dates: start: 20230217
  2. HUMIRA [Suspect]
     Active Substance: ADALIMUMAB
  3. VITAMIN D [Concomitant]
     Active Substance: VITAMIN D NOS
     Indication: Vitamin supplementation
     Route: 065
  4. IRON [Concomitant]
     Active Substance: IRON
     Indication: Mineral supplementation
     Route: 065

REACTIONS (4)
  - Inflammatory marker increased [Recovering/Resolving]
  - Stress [Not Recovered/Not Resolved]
  - Therapeutic product effect incomplete [Not Recovered/Not Resolved]
  - Inflammation [Unknown]

NARRATIVE: CASE EVENT DATE: 20230201
